FAERS Safety Report 6647657-2 (Version None)
Quarter: 2010Q1

REPORT INFORMATION
  Report Type: 
  Country: None (occurrence: None)
  Receive Date: 20100323
  Receipt Date: 20100323
  Transmission Date: 20100710
  Serious: Yes (Other)
  Sender: FDA-Public Use
  Company Number: None

PATIENT
  Sex: Male
  Weight: 79.3795 kg

DRUGS (2)
  1. HALDOL [Suspect]
     Indication: SCHIZOPHRENIA
     Dosage: 50 CC. ONCE A MONTH
     Dates: start: 20090702, end: 20091026
  2. ABILIFY [Suspect]
     Indication: SCHIZOPHRENIA
     Dosage: 30 MG EVERYDAY
     Dates: start: 20050101, end: 20080801

REACTIONS (3)
  - INSOMNIA [None]
  - MUSCLE TWITCHING [None]
  - PARKINSON'S DISEASE [None]
